FAERS Safety Report 10373527 (Version 1)
Quarter: 2014Q3

REPORT INFORMATION
  Report Type: Spontaneous
  Country: US (occurrence: US)
  Receive Date: 20140808
  Receipt Date: 20140808
  Transmission Date: 20150326
  Serious: Yes (Hospitalization, Other)
  Sender: FDA-Public Use
  Company Number: US-GILEAD-2014-0111193

PATIENT
  Age: 50 Year
  Sex: Female

DRUGS (16)
  1. LETAIRIS [Suspect]
     Active Substance: AMBRISENTAN
     Indication: PULMONARY ARTERIAL HYPERTENSION
     Dosage: 10 MG, QD
     Route: 048
     Dates: start: 201312
  2. COLCHICINE. [Concomitant]
     Active Substance: COLCHICINE
  3. NORTRIPTYLINE [Concomitant]
     Active Substance: NORTRIPTYLINE
  4. ALLOPURINOL. [Concomitant]
     Active Substance: ALLOPURINOL
  5. ASA [Concomitant]
     Active Substance: ASPIRIN
  6. LETAIRIS [Suspect]
     Active Substance: AMBRISENTAN
     Indication: DRUG ABUSE
  7. LETAIRIS [Suspect]
     Active Substance: AMBRISENTAN
     Indication: OBESITY
  8. CARVEDILOL. [Concomitant]
     Active Substance: CARVEDILOL
  9. LETAIRIS [Suspect]
     Active Substance: AMBRISENTAN
     Indication: CARDIAC FAILURE CONGESTIVE
  10. SILDENAFIL [Concomitant]
     Active Substance: SILDENAFIL
  11. SPIRONOLACTONE. [Concomitant]
     Active Substance: SPIRONOLACTONE
  12. SIMVASTATIN. [Concomitant]
     Active Substance: SIMVASTATIN
  13. LIDOCAINE. [Concomitant]
     Active Substance: LIDOCAINE
  14. WARFARIN [Concomitant]
     Active Substance: WARFARIN
  15. FUROSEMIDE. [Concomitant]
     Active Substance: FUROSEMIDE
  16. OXYCODONE/APAP                     /00867901/ [Concomitant]

REACTIONS (2)
  - Acute respiratory failure [Unknown]
  - Dyspnoea [Recovering/Resolving]

NARRATIVE: CASE EVENT DATE: 20140730
